FAERS Safety Report 8956363 (Version 2)
Quarter: 2013Q1

REPORT INFORMATION
  Report Type: Spontaneous
  Country: US (occurrence: US)
  Receive Date: 20121210
  Receipt Date: 20130124
  Transmission Date: 20140127
  Serious: Yes (Hospitalization)
  Sender: FDA-Public Use
  Company Number: US-GILEAD-2012-0065857

PATIENT
  Age: 71 Year
  Sex: Female

DRUGS (14)
  1. LETAIRIS [Suspect]
     Indication: COR PULMONALE CHRONIC
     Dosage: 10 MG, QD
     Route: 048
     Dates: start: 20111212
  2. LISINOPRIL [Concomitant]
     Dosage: 2.5 MG, QD
     Route: 048
  3. NOVOLOG [Concomitant]
  4. FOLIC ACID [Concomitant]
  5. VITAMIN D2 [Concomitant]
  6. FERROUS SULPHATE                   /00023503/ [Concomitant]
     Dosage: 325 MG,  UNK
  7. BUMETANIDE [Concomitant]
     Dosage: 0.5 MG, BID
     Route: 048
  8. KLOR-CON [Concomitant]
     Dosage: 10 MEQ, QD
     Route: 048
  9. ALLOPURINOL [Concomitant]
     Dosage: 300 MG, UNK
  10. SPIRIVA [Concomitant]
  11. MULTIVITAMINS, COMBINATIONS [Concomitant]
  12. LIPITOR [Concomitant]
     Dosage: 20 MG, QD
     Route: 048
  13. PANTOPRAZOLE SODIUM [Concomitant]
  14. SENSIPAR [Concomitant]
     Dosage: 90 MG, UNK

REACTIONS (8)
  - Haemorrhage [Unknown]
  - Large intestine perforation [Unknown]
  - Anxiety [Unknown]
  - Chest discomfort [Unknown]
  - Stress [Unknown]
  - Hypertension [Unknown]
  - Fatigue [Unknown]
  - Dyspnoea [Unknown]
